FAERS Safety Report 9506523 (Version 4)
Quarter: 2014Q2

REPORT INFORMATION
  Report Type: Report from Study
  Country: FI (occurrence: FI)
  Receive Date: 20130906
  Receipt Date: 20140402
  Transmission Date: 20141212
  Serious: Yes (Hospitalization, Disabling, Other)
  Sender: FDA-Public Use
  Company Number: PHHY2013FI083283

PATIENT
  Sex: Female

DRUGS (7)
  1. GILENYA [Suspect]
     Indication: MULTIPLE SCLEROSIS
     Route: 048
     Dates: start: 201305, end: 20130806
  2. SIRDALUD MR [Suspect]
     Indication: MUSCLE SPASTICITY
  3. TYSABRI [Suspect]
     Dates: start: 2006
  4. BACLOFEN [Concomitant]
     Indication: MUSCLE SPASTICITY
  5. DETRUSITOL [Concomitant]
     Indication: URINARY TRACT DISORDER
  6. LYRICA [Concomitant]
     Indication: NEURALGIA
  7. MIRTAZAPIN [Concomitant]
     Indication: DEPRESSION

REACTIONS (17)
  - Multiple sclerosis relapse [Recovering/Resolving]
  - General physical health deterioration [Recovering/Resolving]
  - Quadriplegia [Recovering/Resolving]
  - Depressed level of consciousness [Recovering/Resolving]
  - Central nervous system lesion [Recovering/Resolving]
  - Dysphagia [Recovering/Resolving]
  - Neurogenic bladder [Recovering/Resolving]
  - Aphagia [Recovering/Resolving]
  - Speech disorder [Recovering/Resolving]
  - Motor dysfunction [Recovering/Resolving]
  - Convulsion [Recovering/Resolving]
  - Muscular weakness [Recovering/Resolving]
  - Psychotic disorder [Recovering/Resolving]
  - Lymphopenia [Recovering/Resolving]
  - Infection [Recovering/Resolving]
  - Urinary tract infection [Recovering/Resolving]
  - Drug ineffective [Unknown]
